FAERS Safety Report 5160186-0 (Version None)
Quarter: 2006Q4

REPORT INFORMATION
  Report Type: 
  Country: None (occurrence: None)
  Receive Date: 20061129
  Receipt Date: 20061122
  Transmission Date: 20070319
  Serious: Yes (Hospitalization)
  Sender: FDA-Public Use
  Company Number: US-JNJFOC-20061004576

PATIENT
  Sex: Female
  Weight: 63.5 kg

DRUGS (6)
  1. REMICADE [Suspect]
  2. REMICADE [Suspect]
     Dosage: 400 MG
  3. REMICADE [Suspect]
     Indication: RHEUMATOID ARTHRITIS
  4. METHOTREXATE [Concomitant]
     Indication: RHEUMATOID ARTHRITIS
  5. FOLIC ACID [Concomitant]
     Indication: RHEUMATOID ARTHRITIS
  6. PREMPRO [Concomitant]
     Dosage: DAILY DOSE: 0.3 MG/1.5 MG

REACTIONS (2)
  - NEUROPATHY PERIPHERAL [None]
  - OPTIC NEURITIS [None]
